FAERS Safety Report 9315617 (Version 1)
Quarter: 2013Q2

REPORT INFORMATION
  Report Type: Spontaneous
  Country: US (occurrence: US)
  Receive Date: 20130529
  Receipt Date: 20130529
  Transmission Date: 20140414
  Serious: No
  Sender: FDA-Public Use
  Company Number: US-009507513-1305USA015207

PATIENT
  Age: 25 Year
  Sex: Female
  Weight: 58.96 kg

DRUGS (1)
  1. NUVARING [Suspect]
     Indication: CONTRACEPTION
     Dosage: UNK
     Route: 067
     Dates: start: 201205

REACTIONS (6)
  - Menstruation irregular [Recovered/Resolved]
  - Feeling abnormal [Recovered/Resolved]
  - Device expulsion [Unknown]
  - Device expulsion [Unknown]
  - Incorrect drug administration duration [Unknown]
  - Device kink [Unknown]
